FAERS Safety Report 4902002-5 (Version None)
Quarter: 2006Q1

REPORT INFORMATION
  Report Type: 
  Country: None (occurrence: None)
  Receive Date: 20060201
  Receipt Date: 20060201
  Transmission Date: 20060701
  Serious: Yes (Hospitalization)
  Sender: FDA-Public Use
  Company Number: None

PATIENT
  Sex: Male
  Weight: 94.5 kg

DRUGS (26)
  1. LASIX [Suspect]
     Indication: CARDIAC FAILURE CONGESTIVE
     Dosage: 40 MG BID ORAL
     Route: 048
     Dates: start: 20051025, end: 20051119
  2. ACCUCHECK COMFORT CURVE [Concomitant]
  3. ADMINISTRATION SET, IV BRAUN [Concomitant]
  4. ALBUTEROL SULFATE [Concomitant]
  5. AMOXICILLIN [Concomitant]
  6. ASPIRIN [Concomitant]
  7. MONTELUKAST [Concomitant]
  8. NIFEDIPINE [Concomitant]
  9. PAPAIN/UREA OINTMENT [Concomitant]
  10. PHENOL MOUTHWASH [Concomitant]
  11. SIMVASTATIN [Concomitant]
  12. TOLNAFTE 1% TOPICAL POWDER [Concomitant]
  13. TRAZODONE [Concomitant]
  14. VANCOMYCIN [Concomitant]
  15. ZOSYN [Concomitant]
  16. CEPTI-SEAL CL DRESSING CHANGE KIT [Concomitant]
  17. DARBEPOETIN ALFA [Concomitant]
  18. DOCUSATE SODIUM [Concomitant]
  19. FEMALE LUER LOCK CAP [Concomitant]
  20. FERROUS SO4 [Concomitant]
  21. FLUNISOLIDE [Concomitant]
  22. HEPARIN [Concomitant]
  23. HYDROCODONE BITARTRATE + ACETAMINOPHEN [Concomitant]
  24. HUMULIN 70/30 [Concomitant]
  25. IPRATROPIUM BROMIDE [Concomitant]
  26. ISOSORBIDE MONONITRATE [Concomitant]

REACTIONS (4)
  - CARDIAC FAILURE CONGESTIVE [None]
  - CONDITION AGGRAVATED [None]
  - RENAL FAILURE ACUTE [None]
  - URINE OUTPUT DECREASED [None]
